FAERS Safety Report 5202995-5 (Version None)
Quarter: 2006Q4

REPORT INFORMATION
  Report Type: 
  Country: None (occurrence: None)
  Receive Date: 20061016
  Receipt Date: 20050930
  Transmission Date: 20070319
  Serious: Yes (Other)
  Sender: FDA-Public Use
  Company Number: 2005040806

PATIENT
  Sex: Female

DRUGS (1)
  1. NEURONTIN [Suspect]
     Indication: ILL-DEFINED DISORDER
     Dosage: 100 MG, 1 D, ORAL
     Route: 048

REACTIONS (4)
  - ARTHRALGIA [None]
  - HEARING IMPAIRED [None]
  - MALAISE [None]
  - STUPOR [None]
